FAERS Safety Report 17018522 (Version 1)
Quarter: 2019Q4

REPORT INFORMATION
  Report Type: Spontaneous
  Country: AU (occurrence: AU)
  Receive Date: 20191111
  Receipt Date: 20191111
  Transmission Date: 20200122
  Serious: Yes (Other)
  Sender: FDA-Public Use
  Company Number: NVSC2019AU030710

PATIENT
  Sex: Female

DRUGS (1)
  1. GILENYA [Suspect]
     Active Substance: FINGOLIMOD HYDROCHLORIDE
     Indication: PRODUCT USED FOR UNKNOWN INDICATION
     Dosage: UNK
     Route: 065
     Dates: start: 20150625, end: 20190801

REACTIONS (10)
  - Splenic lesion [Unknown]
  - Metastatic neoplasm [Unknown]
  - Type 2 diabetes mellitus [Unknown]
  - Adenocarcinoma [Unknown]
  - Pulmonary mass [Unknown]
  - Pancreatic carcinoma [Unknown]
  - Decreased appetite [Unknown]
  - Hepatic lesion [Unknown]
  - Fatigue [Unknown]
  - Weight decreased [Unknown]
